FAERS Safety Report 21897704 (Version 1)
Quarter: 2023Q1

REPORT INFORMATION
  Report Type: Spontaneous
  Country: US (occurrence: US)
  Receive Date: 20230123
  Receipt Date: 20230123
  Transmission Date: 20230418
  Serious: No
  Sender: FDA-Public Use
  Company Number: US-SA-SAC20230120000921

PATIENT
  Age: 38 Year
  Sex: Female

DRUGS (1)
  1. DUPIXENT [Suspect]
     Active Substance: DUPILUMAB
     Indication: Nasal polyps
     Dosage: 300 MG,FREQUENCY: OTHER
     Route: 058
     Dates: start: 202210

REACTIONS (5)
  - Flank pain [Recovered/Resolved]
  - Vision blurred [Unknown]
  - Eye pruritus [Unknown]
  - Injection site erythema [Unknown]
  - Dry eye [Unknown]

NARRATIVE: CASE EVENT DATE: 20230104
